FAERS Safety Report 5994325-6 (Version None)
Quarter: 2008Q4

REPORT INFORMATION
  Report Type: 
  Country: None (occurrence: None)
  Receive Date: 20081212
  Receipt Date: 20080905
  Transmission Date: 20090506
  Serious: No
  Sender: FDA-Public Use
  Company Number: US-ABBOTT-08P-163-0474842-00

PATIENT
  Sex: Female
  Weight: 118.18 kg

DRUGS (15)
  1. HUMIRA [Suspect]
     Indication: RHEUMATOID ARTHRITIS
     Route: 058
  2. TIZANIDENE [Concomitant]
     Indication: MUSCLE RELAXANT THERAPY
     Route: 048
  3. POTASSIUM CHLORIDE [Concomitant]
     Indication: MINERAL SUPPLEMENTATION
     Dosage: ONE DAILY
     Route: 048
  4. FUROSEMIDE [Concomitant]
     Indication: HYPERTENSION
     Route: 048
  5. CYCLOBENZAPRINE HCL [Concomitant]
     Indication: MUSCLE SPASMS
     Route: 048
  6. PREDNISONE TAB [Concomitant]
     Indication: RHEUMATOID ARTHRITIS
     Route: 048
  7. CELECOXIB [Concomitant]
     Indication: RHEUMATOID ARTHRITIS
     Route: 048
  8. AZATHIOPRINE [Concomitant]
     Indication: RHEUMATOID ARTHRITIS
     Dosage: 50 MG, TWO PILLS TWO TIMES DAILY
     Route: 048
  9. ATORVASTATIN CALCIUM [Concomitant]
     Indication: BLOOD CHOLESTEROL INCREASED
     Route: 048
  10. VERAPAMIL [Concomitant]
     Indication: CARDIAC DISORDER
     Route: 048
  11. PROTOXYTHENE [Concomitant]
     Indication: PAIN
     Dosage: 100/600 MG DAILY
     Route: 048
  12. TOLTERODINE [Concomitant]
     Indication: URINARY INCONTINENCE
     Route: 048
  13. HYDROXYZINE [Concomitant]
     Indication: PRURITUS
     Route: 048
  14. LEVOFLOXACIN [Concomitant]
     Indication: MALAISE
     Route: 048
  15. SULFAMETHOXAZOLE AND TRIMETHOPRIM [Concomitant]
     Route: 048

REACTIONS (3)
  - BACK PAIN [None]
  - DRUG INEFFECTIVE [None]
  - RED BLOOD CELL SEDIMENTATION RATE INCREASED [None]
